FAERS Safety Report 6617474-8 (Version None)
Quarter: 2010Q1

REPORT INFORMATION
  Report Type: 
  Country: None (occurrence: None)
  Receive Date: 20100308
  Receipt Date: 20100301
  Transmission Date: 20100710
  Serious: Yes (Other)
  Sender: FDA-Public Use
  Company Number: US-JNJFOC-20100301041

PATIENT
  Sex: Female
  Weight: 49.9 kg

DRUGS (10)
  1. DURAGESIC-100 [Suspect]
     Indication: PAIN IN EXTREMITY
     Dosage: 100+25 UG/HR
     Route: 062
  2. DURAGESIC-100 [Suspect]
     Indication: BACK PAIN
     Dosage: 100+25 UG/HR
     Route: 062
  3. DURAGESIC-100 [Suspect]
     Route: 062
  4. DURAGESIC-100 [Suspect]
     Route: 062
  5. DURAGESIC-100 [Suspect]
     Route: 062
  6. DURAGESIC-100 [Suspect]
     Route: 062
  7. KLONOPIN [Concomitant]
     Indication: RESTLESS LEGS SYNDROME
     Route: 048
  8. VALIUM [Concomitant]
     Indication: MUSCLE SPASMS
     Route: 048
  9. LUMIGAN [Concomitant]
     Indication: EYE DISORDER
     Dosage: 1 DROP TO EACH EYE DAILY
     Route: 047
  10. DARVOCET [Concomitant]
     Indication: BREAKTHROUGH PAIN
     Route: 048

REACTIONS (8)
  - BACK PAIN [None]
  - CONSTIPATION [None]
  - GASTROOESOPHAGEAL REFLUX DISEASE [None]
  - HIATUS HERNIA [None]
  - HYPOAESTHESIA [None]
  - INTERVERTEBRAL DISC DISORDER [None]
  - PAIN IN EXTREMITY [None]
  - PARAESTHESIA [None]
